FAERS Safety Report 14120098 (Version 1)
Quarter: 2017Q4

REPORT INFORMATION
  Report Type: Spontaneous
  Country: US (occurrence: US)
  Receive Date: 20171024
  Receipt Date: 20171024
  Transmission Date: 20180321
  Serious: No
  Sender: FDA-Public Use
  Company Number: US-GLAXOSMITHKLINE-US2017161769

PATIENT
  Sex: Female

DRUGS (2)
  1. PREDNISONE. [Concomitant]
     Active Substance: PREDNISONE
  2. BREO ELLIPTA [Suspect]
     Active Substance: FLUTICASONE FUROATE\VILANTEROL TRIFENATATE
     Indication: BRONCHIECTASIS
     Dosage: 1 PUFF(S), QD
     Route: 055
     Dates: start: 201708

REACTIONS (7)
  - Intercepted drug administration error [Unknown]
  - Dry throat [Not Recovered/Not Resolved]
  - Lip swelling [Not Recovered/Not Resolved]
  - Myalgia [Unknown]
  - Lip dry [Not Recovered/Not Resolved]
  - Off label use [Unknown]
  - Dry mouth [Not Recovered/Not Resolved]
